FAERS Safety Report 4595542-2 (Version None)
Quarter: 2005Q1

REPORT INFORMATION
  Report Type: 
  Country: None (occurrence: None)
  Receive Date: 20050228
  Receipt Date: 20050228
  Transmission Date: 20050727
  Serious: Yes (Hospitalization)
  Sender: FDA-Public Use
  Company Number: None

PATIENT
  Age: 44 Year
  Sex: Male
  Weight: 100.6985 kg

DRUGS (8)
  1. LEVAQUIN [Suspect]
     Indication: UPPER RESPIRATORY TRACT INFECTION
     Dosage: PO
     Route: 048
     Dates: start: 20050207, end: 20050210
  2. SOLU-MEDROL [Concomitant]
  3. BENADRYL [Concomitant]
  4. ZANTAC [Concomitant]
  5. BENICOR [Concomitant]
  6. LOPRESSOR [Concomitant]
  7. HYDROCHLOROTHIAZIDE [Concomitant]
  8. CATAPRES [Concomitant]

REACTIONS (5)
  - EYE SWELLING [None]
  - PHARYNGOLARYNGEAL PAIN [None]
  - SELF-MEDICATION [None]
  - SWELLING FACE [None]
  - SWOLLEN TONGUE [None]
